FAERS Safety Report 9520724 (Version 1)
Quarter: 2013Q1

REPORT INFORMATION
  Report Type: Spontaneous
  Country: US (occurrence: None)
  Receive Date: 20130305
  Receipt Date: 20130305
  Transmission Date: 20140127
  Serious: Yes (Other)
  Sender: FDA-Public Use
  Company Number: 163-21880-12033475

PATIENT
  Age: 68 Year
  Sex: Female
  Weight: 81.65 kg

DRUGS (18)
  1. REVLIMID [Suspect]
     Indication: PLASMA CELL MYELOMA
     Dosage: 25 MG, 1 IN 1 D, PO
     Route: 048
     Dates: start: 20110725, end: 2011
  2. TRIAMTERENE-HCTZ (DYAZIDE) (UNKNOWN) [Concomitant]
  3. SYNTHROID (LEVOTHYROXINE SODIUM) (UNKNOWN)? [Concomitant]
  4. AMLODIPINE-BENAZEPRIL (AMLODIPINE BESYLATE W/BENAZEPRIL HYDROCHLOR.) (UNKNOWN) [Concomitant]
  5. NORTRIPTYLINE (NORTRIPTYLINE) (UNKNOWN) [Concomitant]
  6. CARISOPRODOL (CARISOPRODOL) (UNKNOWN) [Concomitant]
  7. TRAZAMINE (TRAZAMINE) (UNKNOWN) [Concomitant]
  8. EVISTA (RALOXIFENE HYDROCHLORIDE) (UNKNOWN) [Concomitant]
  9. ALLEGRA (FEXOFENADINE HYDROCHLORIDE) (UNKNONW) [Concomitant]
  10. ASPIRIN (ENTERIC-COATED TABLET) [Concomitant]
  11. COUMADIN (WARFARIN SODIUM) (UNKNOWN) [Concomitant]
  12. DEXAMETHASONE (DEXAMETHASONE) (UNKNOWN) [Concomitant]
  13. PHENERGAN (PROMETHAZINE) (UNKNOWN) [Concomitant]
  14. POTASSIUM (POTASSIUM) (UNKNOWN) [Concomitant]
  15. COMPAZINE (PROCHLORPERAZINE EDISYLATE) (UNKNOWN) [Concomitant]
  16. FERROUS SULFATE (FERROUS SULFATE) (UNKNOWN) [Concomitant]
  17. DECADRON [Concomitant]
  18. IRON [Concomitant]

REACTIONS (3)
  - Arthralgia [None]
  - Fatigue [None]
  - Drug intolerance [None]
